FAERS Safety Report 6736824-5 (Version None)
Quarter: 2010Q2

REPORT INFORMATION
  Report Type: 
  Country: None (occurrence: None)
  Receive Date: 20100521
  Receipt Date: 20100518
  Transmission Date: 20101027
  Serious: Yes (Hospitalization)
  Sender: FDA-Public Use
  Company Number: HU-ROCHE-653787

PATIENT
  Sex: Male
  Weight: 79 kg

DRUGS (6)
  1. BEVACIZUMAB [Suspect]
     Indication: RENAL CELL CARCINOMA
     Dosage: FORM: INFUSION
     Route: 042
     Dates: start: 20090826, end: 20090828
  2. TEMSIROLIMUS [Suspect]
     Indication: RENAL CELL CARCINOMA
     Route: 042
     Dates: start: 20090826, end: 20090828
  3. ENALAPRIL MALEATE [Concomitant]
     Indication: HYPERTENSION
  4. BETALOC ZOK [Concomitant]
     Indication: HYPERTENSION
  5. CARDURA [Concomitant]
     Indication: HYPERTENSION
     Dates: end: 20090903
  6. ASPIRIN [Concomitant]
     Indication: THROMBOSIS PROPHYLAXIS
     Dosage: DRUG: ASPIRIN PROTECT
     Dates: start: 20090903

REACTIONS (5)
  - DERMATITIS ALLERGIC [None]
  - HEADACHE [None]
  - HYPERGLYCAEMIA [None]
  - RASH [None]
  - SINUSITIS [None]
